FAERS Safety Report 12526597 (Version 3)
Quarter: 2016Q3

REPORT INFORMATION
  Report Type: Spontaneous
  Country: CL (occurrence: CL)
  Receive Date: 20160705
  Receipt Date: 20160805
  Transmission Date: 20161109
  Serious: Yes (Death, Hospitalization)
  Sender: FDA-Public Use
  Company Number: PHHY2016CL091636

PATIENT
  Age: 48 Year
  Sex: Female
  Weight: 110 kg

DRUGS (1)
  1. ZYKADIA [Suspect]
     Active Substance: CERITINIB
     Indication: LUNG ADENOCARCINOMA STAGE IV
     Dosage: 750 MG, QD
     Route: 048
     Dates: start: 20160527, end: 20160608

REACTIONS (9)
  - Lung adenocarcinoma stage IV [Fatal]
  - Anaphylactic reaction [Fatal]
  - Face oedema [Fatal]
  - Respiratory tract oedema [Fatal]
  - Cardio-respiratory arrest [Fatal]
  - Dyspnoea [Fatal]
  - Multiple organ dysfunction syndrome [Fatal]
  - Oedema mucosal [Fatal]
  - Respiratory tract haemorrhage [Fatal]

NARRATIVE: CASE EVENT DATE: 20160608
